FAERS Safety Report 20216592 (Version 1)
Quarter: 2021Q4

REPORT INFORMATION
  Report Type: Spontaneous
  Country: JP (occurrence: JP)
  Receive Date: 20211222
  Receipt Date: 20211222
  Transmission Date: 20220303
  Serious: Yes (Other)
  Sender: FDA-Public Use
  Company Number: JP-WOCKHARDT LIMITED-2021WLD000006

PATIENT
  Age: 39 Year
  Sex: Female
  Weight: 52.5 kg

DRUGS (4)
  1. LEVETIRACETAM [Suspect]
     Active Substance: LEVETIRACETAM
     Indication: Temporal lobe epilepsy
     Dosage: 2500 MG, QD
     Route: 065
  2. LEVETIRACETAM [Suspect]
     Active Substance: LEVETIRACETAM
     Dosage: 3000 MG, QD
     Route: 065
     Dates: start: 201905, end: 201909
  3. LEVETIRACETAM [Suspect]
     Active Substance: LEVETIRACETAM
     Dosage: 2000 MG, QD
     Route: 065
     Dates: start: 201912
  4. LACOSAMIDE [Concomitant]
     Active Substance: LACOSAMIDE
     Indication: Temporal lobe epilepsy
     Dosage: 400 MG, QD
     Route: 065
     Dates: start: 201912

REACTIONS (2)
  - Seizure [Recovered/Resolved]
  - Condition aggravated [Recovered/Resolved]
